FAERS Safety Report 6392110-7 (Version None)
Quarter: 2009Q4

REPORT INFORMATION
  Report Type: 
  Country: None (occurrence: None)
  Receive Date: 20091007
  Receipt Date: 20091002
  Transmission Date: 20100525
  Serious: Yes (Hospitalization)
  Sender: FDA-Public Use
  Company Number: US-MERCK-0910USA00407

PATIENT
  Age: 85 Year
  Sex: Male

DRUGS (2)
  1. DECADRON [Suspect]
     Route: 048
  2. REVLIMID [Suspect]
     Indication: MULTIPLE MYELOMA
     Route: 048
     Dates: start: 20090101

REACTIONS (1)
  - PNEUMONIA FUNGAL [None]
